FAERS Safety Report 26127366 (Version 1)
Quarter: 2025Q4

REPORT INFORMATION
  Report Type: Spontaneous
  Country: CN (occurrence: CN)
  Receive Date: 20251205
  Receipt Date: 20251205
  Transmission Date: 20260118
  Serious: Yes (Other)
  Sender: MERCK SHARP & DOHME LLC
  Company Number: CN-009507513-2357175

PATIENT
  Age: 37 Year
  Sex: Female

DRUGS (2)
  1. TEMOZOLOMIDE [Suspect]
     Active Substance: TEMOZOLOMIDE
     Indication: Glioblastoma
     Dosage: 100MG/M2/D
     Dates: start: 202403, end: 202405
  2. TEMOZOLOMIDE [Suspect]
     Active Substance: TEMOZOLOMIDE
     Indication: Glioblastoma
     Dosage: 200MG/M2(5/28D)
     Dates: start: 202405

REACTIONS (5)
  - Malignant neoplasm progression [Unknown]
  - Facial paralysis [Recovered/Resolved]
  - Trismus [Recovered/Resolved]
  - Gait disturbance [Recovered/Resolved]
  - Mastication disorder [Recovered/Resolved]

NARRATIVE: CASE EVENT DATE: 20240101
